FAERS Safety Report 10657412 (Version 3)
Quarter: 2015Q1

REPORT INFORMATION
  Report Type: Spontaneous
  Country: None (occurrence: None)
  Receive Date: 20141215
  Receipt Date: 20150225
  Transmission Date: 20150720
  Serious: Yes (Hospitalization)
  Sender: FDA-Public Use
  Company Number: 2014120044

PATIENT
  Age: 26 Year
  Sex: Female

DRUGS (3)
  1. EN [Suspect]
     Active Substance: DELORAZEPAM
     Indication: INTENTIONAL SELF-INJURY
     Dosage: 60 GTT (60 GTT, 1 IN 1 TOTAL)
     Route: 048
     Dates: start: 20141202, end: 20141202
  2. ZOLPIDEM TARTRATE. [Suspect]
     Active Substance: ZOLPIDEM TARTRATE
     Indication: INTENTIONAL SELF-INJURY
     Dosage: 5 DOSAGE FORMS (5 DOSAGE FORMS, 1 IN 1 TOTAL)
     Route: 048
     Dates: start: 20141202, end: 20141202
  3. FLUVOXAMINE MALEATE. [Suspect]
     Active Substance: FLUVOXAMINE MALEATE
     Indication: INTENTIONAL SELF-INJURY
     Dosage: 4 DOSAGE FORMS (4 DOSAGE FORMS, 1 IN 1 TOTAL)
     Dates: start: 20141202, end: 20141202

REACTIONS (6)
  - Gaze palsy [None]
  - Anxiety [None]
  - Tremor [None]
  - Drug abuse [None]
  - Intentional overdose [None]
  - Intentional self-injury [None]

NARRATIVE: CASE EVENT DATE: 20141202
